FAERS Safety Report 20904328 (Version 2)
Quarter: 2022Q2

REPORT INFORMATION
  Report Type: Spontaneous
  Country: JP (occurrence: JP)
  Receive Date: 20220602
  Receipt Date: 20220615
  Transmission Date: 20220720
  Serious: Yes (Other)
  Sender: FDA-Public Use
  Company Number: JP-MSD-2203JPN002853J

PATIENT
  Sex: Female

DRUGS (1)
  1. KEYTRUDA [Suspect]
     Active Substance: PEMBROLIZUMAB
     Indication: Ovarian cancer
     Dosage: UNK
     Route: 041

REACTIONS (4)
  - Ileus paralytic [Unknown]
  - Malignant neoplasm progression [Unknown]
  - Infected neoplasm [Unknown]
  - Condition aggravated [Unknown]
